FAERS Safety Report 4504365-1 (Version None)
Quarter: 2004Q4

REPORT INFORMATION
  Report Type: 
  Country: None (occurrence: None)
  Receive Date: 20041117
  Receipt Date: 20041117
  Transmission Date: 20050328
  Serious: No
  Sender: FDA-Public Use
  Company Number: None

PATIENT
  Age: 62 Year
  Sex: Male
  Weight: 102.5129 kg

DRUGS (5)
  1. METFORMIN HYDROCHLORIDE [Suspect]
     Dosage: ONE DAILY INCREASE TO 2 DAILY
  2. AVANDIA [Concomitant]
  3. LIPITOR [Concomitant]
  4. ECOTRIN [Concomitant]
  5. ASPIRIN [Concomitant]

REACTIONS (4)
  - BLOOD GLUCOSE INCREASED [None]
  - DRUG INEFFECTIVE [None]
  - PHARMACEUTICAL PRODUCT COMPLAINT [None]
  - STOOL ANALYSIS ABNORMAL [None]
